FAERS Safety Report 15782011 (Version 4)
Quarter: 2019Q2

REPORT INFORMATION
  Report Type: Spontaneous
  Country: US (occurrence: US)
  Receive Date: 20190102
  Receipt Date: 20190530
  Transmission Date: 20190711
  Serious: No
  Sender: FDA-Public Use
  Company Number: US-PFIZER INC-2018522292

PATIENT
  Age: 70 Year
  Sex: Female
  Weight: 59 kg

DRUGS (4)
  1. LYRICA [Suspect]
     Active Substance: PREGABALIN
     Dosage: 50 MG, 3X/DAY
     Route: 048
     Dates: start: 201801
  2. CYMBALTA [Concomitant]
     Active Substance: DULOXETINE HYDROCHLORIDE
     Indication: ANXIETY
  3. CYMBALTA [Concomitant]
     Active Substance: DULOXETINE HYDROCHLORIDE
     Indication: DEPRESSION
     Dosage: 60 MG, 1X/DAY
     Route: 048
     Dates: start: 201801
  4. LYRICA [Suspect]
     Active Substance: PREGABALIN
     Indication: ANXIETY
     Dosage: 25 MG, 3X/DAY(DISSOLVE THE 25MG CAPSULE IN 100ML OF WATER AND TAKE IT 3 TIMES PER DAY OVER A PERIOD

REACTIONS (10)
  - Product use in unapproved indication [Unknown]
  - Withdrawal syndrome [Recovering/Resolving]
  - Headache [Recovering/Resolving]
  - Intentional product misuse [Unknown]
  - Cognitive disorder [Recovering/Resolving]
  - Wrong technique in product usage process [Unknown]
  - Impaired driving ability [Recovering/Resolving]
  - Head discomfort [Recovering/Resolving]
  - Feeling jittery [Recovering/Resolving]
  - Bruxism [Recovering/Resolving]

NARRATIVE: CASE EVENT DATE: 201802
